FAERS Safety Report 25502321 (Version 1)
Quarter: 2025Q3

REPORT INFORMATION
  Report Type: Spontaneous
  Country: JP (occurrence: JP)
  Receive Date: 20250702
  Receipt Date: 20250702
  Transmission Date: 20251021
  Serious: Yes (Hospitalization)
  Sender: CATALYST PHARMA
  Company Number: JP-CATALYSTPHARMACEUTICALPARTNERS-JP-CATA-25-00933

PATIENT
  Sex: Female

DRUGS (8)
  1. PERAMPANEL [Suspect]
     Active Substance: PERAMPANEL
     Indication: Epilepsy
     Dosage: 2.0 MILLIGRAM(S) (2 MILLIGRAM(S), 1 IN 1 DAY) (120 MILLIGRAM(S)) BEFORE BEDTIME
     Route: 048
  2. PERAMPANEL [Suspect]
     Active Substance: PERAMPANEL
     Route: 048
  3. PERAMPANEL [Suspect]
     Active Substance: PERAMPANEL
     Route: 048
  4. FLUNITRAZEPAM [Suspect]
     Active Substance: FLUNITRAZEPAM
     Indication: Agitation
     Dosage: 4.0 MILLIGRAM(S) (2 MILLIGRAM(S), 2 IN 1 DAY)
     Route: 042
  5. FLUNITRAZEPAM [Suspect]
     Active Substance: FLUNITRAZEPAM
     Dosage: 4.0 MILLIGRAM(S) (2 MILLIGRAM(S), 2 IN 1 DAY)
     Route: 042
  6. FLUNITRAZEPAM [Suspect]
     Active Substance: FLUNITRAZEPAM
     Dosage: 4.0 MILLIGRAM(S) (2 MILLIGRAM(S), 2 IN 1 DAY) (2 MILLIGRAM(S), 2 IN 1 TOTAL)
     Route: 042
  7. FLUNITRAZEPAM [Suspect]
     Active Substance: FLUNITRAZEPAM
     Route: 042
  8. FLUNITRAZEPAM [Suspect]
     Active Substance: FLUNITRAZEPAM
     Dosage: 4.0 MILLIGRAM(S) (2 MILLIGRAM(S), 2 IN 1 DAY)
     Route: 042

REACTIONS (5)
  - Toxicity to various agents [Recovering/Resolving]
  - Anticonvulsant drug level increased [Recovering/Resolving]
  - Altered state of consciousness [Recovered/Resolved]
  - Aggression [Recovered/Resolved]
  - Overdose [Recovering/Resolving]
